FAERS Safety Report 8565439-1 (Version None)
Quarter: 2012Q3

REPORT INFORMATION
  Report Type: 
  Country: None (occurrence: None)
  Receive Date: 20120803
  Receipt Date: 20120728
  Transmission Date: 20120928
  Serious: Yes (Other)
  Sender: FDA-Public Use
  Company Number: US-PFIZER INC-2012184184

PATIENT
  Sex: Female

DRUGS (2)
  1. NEURONTIN [Suspect]
     Dosage: 300 MG, 2 IN THE MORNING 1 IN THE AFTERNOON AND 2 IN THE EVENING
  2. LYRICA [Suspect]
     Indication: PAIN
     Dosage: 50 MG, UNK

REACTIONS (3)
  - NEURALGIA [None]
  - SPINAL OPERATION [None]
  - DRUG INEFFECTIVE [None]
